FAERS Safety Report 7595321-8 (Version None)
Quarter: 2011Q3

REPORT INFORMATION
  Report Type: 
  Country: None (occurrence: None)
  Receive Date: 20110707
  Receipt Date: 20110623
  Transmission Date: 20111222
  Serious: Yes (Other)
  Sender: FDA-Public Use
  Company Number: US-ELI_LILLY_AND_COMPANY-US201001003605

PATIENT
  Sex: Female

DRUGS (40)
  1. FUROSEMIDE [Concomitant]
     Dosage: 80 MG, BID
  2. HYDROCODONE BITARTRATE [Concomitant]
  3. FENTANYL [Concomitant]
     Indication: PAIN
     Dosage: 25 MG, PRN
  4. ASPIRIN [Concomitant]
     Dosage: 81 MG, UNK
  5. FORTEO [Suspect]
     Dosage: 20 UG, QD
  6. TEKTURNA [Concomitant]
     Indication: BLOOD PRESSURE
     Dosage: 300 MG, QD
  7. CLONIDINE [Concomitant]
     Indication: HYPERTENSION
     Dosage: 0.1 MG, PRN
  8. METOPROLOL TARTRATE [Concomitant]
     Indication: BLOOD PRESSURE
     Dosage: 100 MG, BID
  9. NITROGLYCERIN [Concomitant]
     Indication: CARDIAC DISORDER
     Dosage: 0.4 MG, QD
     Route: 062
  10. PLAVIX [Concomitant]
     Indication: CARDIAC DISORDER
     Dosage: 75 MG, QD
  11. MIRALAX [Concomitant]
     Indication: GASTROINTESTINAL MOTILITY DISORDER
     Dosage: UNK, QD
  12. FORTEO [Suspect]
     Indication: OSTEOPOROSIS
     Dosage: 20 UG, DAILY (1/D)
     Dates: start: 20091111
  13. NITROGLYCERIN [Concomitant]
  14. OMEPRAZOLE [Concomitant]
     Indication: GASTROOESOPHAGEAL REFLUX DISEASE
     Dosage: 20 MG, QD
  15. NASONEX [Concomitant]
  16. FORTEO [Suspect]
     Dosage: 20 UG, DAILY (1/D)
     Route: 065
  17. SYNTHROID [Concomitant]
  18. ZOLPIDEM [Concomitant]
  19. PREDNISONE [Concomitant]
     Indication: OSTEOPOROSIS
     Dosage: 2.5 MG, QD
  20. FLEXERIL [Concomitant]
  21. DURAGESIC-100 [Concomitant]
  22. LEVOTHYROXINE SODIUM [Concomitant]
     Indication: NEOPLASM
     Dosage: 0.05 MG, QD
  23. CALCIUM 600 PLUS VITAMIN D [Concomitant]
     Dosage: UNK, BID
  24. AMBIEN [Concomitant]
     Indication: STRESS
     Dosage: 10 MG, PRN
  25. TYLENOL                                 /SCH/ [Concomitant]
  26. FORTEO [Suspect]
     Dosage: 20 UG, DAILY (1/D)
  27. NITROGLYCERIN [Concomitant]
     Indication: PAIN
     Dosage: 400 MG, PRN
     Route: 002
  28. PREDNISONE [Concomitant]
     Dosage: 5 MG, UNK
  29. DULCOLAX [Concomitant]
  30. NITROLINGUAL PUMPSPRAY [Concomitant]
  31. LORTAB [Concomitant]
     Indication: PAIN
  32. DOCUSATE [Concomitant]
     Indication: GASTROINTESTINAL MOTILITY DISORDER
     Dosage: 240 MG, PRN
  33. EXFORGE [Concomitant]
     Indication: BLOOD PRESSURE
     Dosage: 320 MG, QD
  34. FUROSEMIDE [Concomitant]
     Indication: BLOOD PRESSURE
     Dosage: 40 MG, BID
  35. FORTEO [Suspect]
     Dosage: 20 UG, DAILY (1/D)
  36. CATAPRES                                /UNK/ [Concomitant]
     Indication: CARDIAC DISORDER
     Dosage: 0.2 MG, WEEKLY (1/W)
  37. ASPIRIN [Concomitant]
     Indication: CARDIAC DISORDER
     Dosage: 81 MG, QD
  38. CYCLOBENZAPRINE [Concomitant]
  39. MAGNESIUM [Concomitant]
     Dosage: 250 MG, QD
  40. CO Q10 [Concomitant]
     Dosage: 50 MG, QD

REACTIONS (37)
  - CARDIAC DISORDER [None]
  - LUNG DISORDER [None]
  - KIDNEY INFECTION [None]
  - HYPOTENSION [None]
  - OEDEMA PERIPHERAL [None]
  - ERYTHEMA [None]
  - BLINDNESS UNILATERAL [None]
  - LOSS OF CONSCIOUSNESS [None]
  - CARDIAC FAILURE CONGESTIVE [None]
  - BLOOD PRESSURE INCREASED [None]
  - BREAST SWELLING [None]
  - CONTUSION [None]
  - NAUSEA [None]
  - SWELLING [None]
  - RETINAL TEAR [None]
  - FALL [None]
  - DYSPNOEA [None]
  - DIZZINESS [None]
  - INJECTION SITE HAEMORRHAGE [None]
  - FEELING ABNORMAL [None]
  - MALAISE [None]
  - RENAL IMPAIRMENT [None]
  - FOOT FRACTURE [None]
  - VISUAL IMPAIRMENT [None]
  - FIBROMA [None]
  - BLOOD CALCIUM INCREASED [None]
  - PAIN IN EXTREMITY [None]
  - ARTHROPATHY [None]
  - HEAD INJURY [None]
  - LYMPHADENOPATHY [None]
  - EAR DISORDER [None]
  - POLLAKIURIA [None]
  - ASTHENIA [None]
  - EAR PAIN [None]
  - HAND FRACTURE [None]
  - GAIT DISTURBANCE [None]
  - CERUMEN IMPACTION [None]
